FAERS Safety Report 5664645-3 (Version None)
Quarter: 2008Q1

REPORT INFORMATION
  Report Type: 
  Country: None (occurrence: None)
  Receive Date: 20080314
  Receipt Date: 20080310
  Transmission Date: 20080703
  Serious: Yes (Other)
  Sender: FDA-Public Use
  Company Number: US-MERCK-0803USA01574

PATIENT
  Age: 76 Year
  Sex: Male

DRUGS (3)
  1. ZETIA [Suspect]
     Route: 048
     Dates: start: 20070601
  2. LIPITOR [Concomitant]
     Route: 065
  3. TRICOR [Concomitant]
     Route: 065

REACTIONS (1)
  - BLOOD TRIGLYCERIDES INCREASED [None]
